FAERS Safety Report 9088035 (Version 2)
Quarter: 2013Q1

REPORT INFORMATION
  Report Type: Spontaneous
  Country: CO (occurrence: CO)
  Receive Date: 20130201
  Receipt Date: 20130214
  Transmission Date: 20140127
  Serious: Yes (Death, Hospitalization)
  Sender: FDA-Public Use
  Company Number: PHHY2013CO008801

PATIENT
  Age: 59 Year
  Sex: Male

DRUGS (2)
  1. SANDOSTATIN LAR [Suspect]
     Indication: NEUROENDOCRINE TUMOUR
     Dosage: 20 MG, EVERY 28 DAYS
     Route: 030
     Dates: start: 20120622, end: 20121127
  2. CHEMOTHERAPEUTICS [Concomitant]
     Dosage: UNK UKN, UNK

REACTIONS (4)
  - Gastrointestinal infection [Fatal]
  - Septic shock [Fatal]
  - General physical health deterioration [Unknown]
  - Diarrhoea [Unknown]
